FAERS Safety Report 7979493-9 (Version None)
Quarter: 2011Q4

REPORT INFORMATION
  Report Type: 
  Country: None (occurrence: None)
  Receive Date: 20111129
  Receipt Date: 20110916
  Transmission Date: 20120403
  Serious: Yes (Death)
  Sender: FDA-Public Use
  Company Number: PHEH2011US04421

PATIENT
  Sex: Female
  Weight: 97.0244 kg

DRUGS (11)
  1. COMPAZINE (PROCHLORPERAZINE EDISYLATE) TABLET [Concomitant]
  2. VISTARIL [Concomitant]
  3. METHADONE (METHADONE) TABLET [Concomitant]
  4. OMEPRAZOLE [Concomitant]
  5. EFFEXOR [Concomitant]
  6. LOVENOX [Concomitant]
  7. AFINITOR [Suspect]
     Indication: NEOPLASM
     Dosage: 5 MG, QD, ORAL
     Route: 048
     Dates: start: 20110608, end: 20110726
  8. SORAFENIB (SORAFENIB) 200MG [Suspect]
     Indication: NEOPLASM
     Dosage: 400 MG, BID, ORAL
     Route: 048
     Dates: start: 20110615, end: 20110726
  9. LORTAB [Concomitant]
  10. LISINOPRIL [Concomitant]
  11. OXYCODONE HCL [Concomitant]

REACTIONS (2)
  - NEOPLASM PROGRESSION [None]
  - NEOPLASM MALIGNANT [None]
